FAERS Safety Report 8900198 (Version 1)
Quarter: 2012Q4

REPORT INFORMATION
  Report Type: 
  Country: US (occurrence: US)
  Receive Date: 20121108
  Receipt Date: 20121108
  Transmission Date: 20130627
  Serious: No
  Sender: FDA-Public Use
  Company Number: US-AMGEN-USASP2012037362

PATIENT
  Age: 55 Year
  Sex: Male
  Weight: 82.54 kg

DRUGS (14)
  1. ENBREL [Suspect]
     Indication: PRODUCT USED FOR UNKNOWN INDICATION
     Dosage: 50 mg, qwk
     Route: 058
  2. BUSPIRONE [Concomitant]
     Dosage: 10 mg, UNK
  3. SIMVASTATIN [Concomitant]
     Dosage: 10 mg, UNK
  4. ATENOLOL [Concomitant]
     Dosage: 100 mg, UNK
  5. OMEPRAZOLE [Concomitant]
     Dosage: 10 mg, UNK
  6. CLONAZEPAM [Concomitant]
     Dosage: 1 mg, UNK
  7. AMLODIPINE [Concomitant]
     Dosage: 10 mg, UNK
  8. HYDROCHLOROTH [Concomitant]
     Dosage: 12.5 mg, UNK
  9. MULTIVITAMIN                       /00097801/ [Concomitant]
  10. CINNAMON                           /01647501/ [Concomitant]
     Dosage: 10 mg, UNK
  11. FISH OIL [Concomitant]
  12. VIAGRA [Concomitant]
     Dosage: 100 mg, UNK
  13. ALLEGRA [Concomitant]
     Dosage: 180 mg, UNK
  14. ASPIRIN [Concomitant]
     Dosage: 81 mg, UNK

REACTIONS (1)
  - Therapeutic response decreased [Unknown]
